FAERS Safety Report 5358934-X (Version None)
Quarter: 2007Q2

REPORT INFORMATION
  Report Type: 
  Country: None (occurrence: None)
  Receive Date: 20070615
  Receipt Date: 20070606
  Transmission Date: 20071010
  Serious: Yes (Other)
  Sender: FDA-Public Use
  Company Number: B0475129A

PATIENT
  Age: 39 Year
  Sex: Female

DRUGS (4)
  1. SEROXAT [Suspect]
     Indication: IRRITABLE BOWEL SYNDROME
     Dosage: 20MG PER DAY
     Route: 048
     Dates: start: 20070515, end: 20070516
  2. ASPIRIN [Concomitant]
     Dosage: 75MG PER DAY
     Route: 048
  3. FYBOGEL [Concomitant]
     Route: 048
  4. SENNA [Concomitant]
     Route: 048

REACTIONS (7)
  - ASTHENIA [None]
  - CHILLS [None]
  - FATIGUE [None]
  - INFLUENZA LIKE ILLNESS [None]
  - MUSCLE SPASMS [None]
  - NECK PAIN [None]
  - SOMNOLENCE [None]
